FAERS Safety Report 5289660-3 (Version None)
Quarter: 2007Q2

REPORT INFORMATION
  Report Type: 
  Country: None (occurrence: None)
  Receive Date: 20070406
  Receipt Date: 20070330
  Transmission Date: 20071010
  Serious: Yes (Other)
  Sender: FDA-Public Use
  Company Number: 2007AP01943

PATIENT
  Sex: Female

DRUGS (2)
  1. XYLOCAINE W/ EPINEPHRINE [Suspect]
     Route: 042
  2. XYLOCAINE [Suspect]
     Route: 042

REACTIONS (4)
  - ARTHRALGIA [None]
  - FEELING ABNORMAL [None]
  - HEART RATE INCREASED [None]
  - PHARYNGOLARYNGEAL PAIN [None]
